FAERS Safety Report 11754088 (Version 1)
Quarter: 2015Q4

REPORT INFORMATION
  Report Type: Spontaneous
  Country: US (occurrence: US)
  Receive Date: 20151119
  Receipt Date: 20151119
  Transmission Date: 20160304
  Serious: No
  Sender: FDA-Public Use
  Company Number: US-BAYER-2015-469277

PATIENT
  Sex: Male
  Weight: 77.98 kg

DRUGS (1)
  1. MIRALAX [Suspect]
     Active Substance: POLYETHYLENE GLYCOL 3350
     Indication: RADIOTHERAPY
     Dosage: 1 DF, BID
     Route: 048
     Dates: start: 201511

REACTIONS (2)
  - Intercepted drug administration error [None]
  - Off label use [None]
